FAERS Safety Report 11670162 (Version 4)
Quarter: 2015Q4

REPORT INFORMATION
  Report Type: Report from Study
  Country: US (occurrence: US)
  Receive Date: 20151028
  Receipt Date: 20151028
  Transmission Date: 20160304
  Serious: Yes (Hospitalization)
  Sender: FDA-Public Use
  Company Number: US-ABBVIE-15K-163-1486585-00

PATIENT
  Age: 77 Year
  Sex: Female

DRUGS (3)
  1. KEFLEX [Concomitant]
     Active Substance: CEPHALEXIN
     Indication: PROPHYLAXIS URINARY TRACT INFECTION
     Route: 048
  2. HUMIRA [Suspect]
     Active Substance: ADALIMUMAB
     Route: 058
     Dates: start: 201508
  3. HUMIRA [Suspect]
     Active Substance: ADALIMUMAB
     Indication: RHEUMATOID ARTHRITIS
     Route: 058
     Dates: end: 20150725

REACTIONS (7)
  - Contusion [Recovering/Resolving]
  - Fall [Recovered/Resolved]
  - Urinary tract infection [Recovered/Resolved]
  - Musculoskeletal pain [Recovering/Resolving]
  - Joint stiffness [Recovering/Resolving]
  - Asthenia [Recovering/Resolving]
  - Wound [Recovering/Resolving]

NARRATIVE: CASE EVENT DATE: 201507
